FAERS Safety Report 11431634 (Version 2)
Quarter: 2015Q3

REPORT INFORMATION
  Report Type: Spontaneous
  Country: SK (occurrence: SK)
  Receive Date: 20150828
  Receipt Date: 20150925
  Transmission Date: 20151125
  Serious: Yes (Death)
  Sender: FDA-Public Use
  Company Number: SK-PFIZER INC-2015031288

PATIENT
  Age: 63 Year
  Sex: Male

DRUGS (1)
  1. INLYTA [Suspect]
     Active Substance: AXITINIB
     Dosage: 5 MG, 2X/DAY
     Dates: start: 20131219

REACTIONS (4)
  - Fatigue [Unknown]
  - Respiratory failure [Fatal]
  - Dyspepsia [Unknown]
  - Hypertension [Unknown]

NARRATIVE: CASE EVENT DATE: 20150804
